FAERS Safety Report 8216259-9 (Version None)
Quarter: 2012Q1

REPORT INFORMATION
  Report Type: 
  Country: None (occurrence: None)
  Receive Date: 20120316
  Receipt Date: 20120312
  Transmission Date: 20120608
  Serious: Yes (Hospitalization)
  Sender: FDA-Public Use
  Company Number: PHHY2012VE022800

PATIENT
  Age: 67 Year
  Sex: Female

DRUGS (7)
  1. LIPITOR [Concomitant]
     Dosage: 40 MG, QD
     Dates: start: 20020101
  2. CORASPIN [Concomitant]
     Dosage: 81 MG, QD
     Dates: start: 20020101
  3. FORADIL [Suspect]
  4. SPIRIVA [Concomitant]
  5. PLAVIX [Concomitant]
     Dosage: 75 MG, QD
     Dates: start: 20020101
  6. BENICAR [Concomitant]
     Dosage: 50 MG, QD
     Dates: start: 20020101
  7. MODURETIC 5-50 [Concomitant]
     Indication: DIURETIC THERAPY
     Dosage: UNK
     Dates: start: 20020101

REACTIONS (1)
  - LUNG NEOPLASM MALIGNANT [None]
